FAERS Safety Report 14681446 (Version 2)
Quarter: 2018Q2

REPORT INFORMATION
  Report Type: Spontaneous
  Country: US (occurrence: US)
  Receive Date: 20180326
  Receipt Date: 20180508
  Transmission Date: 20180711
  Serious: No
  Sender: FDA-Public Use
  Company Number: US-BIOGEN-2011BI010420

PATIENT
  Sex: Male

DRUGS (4)
  1. AVONEX [Suspect]
     Active Substance: INTERFERON BETA-1A
     Route: 030
     Dates: start: 20050511
  2. AVONEX [Suspect]
     Active Substance: INTERFERON BETA-1A
     Indication: MULTIPLE SCLEROSIS
     Route: 030
     Dates: start: 19960401, end: 20130923
  3. AVONEX [Suspect]
     Active Substance: INTERFERON BETA-1A
     Route: 030
  4. AVONEX [Suspect]
     Active Substance: INTERFERON BETA-1A
     Route: 030

REACTIONS (8)
  - Feeling of body temperature change [Unknown]
  - Impaired healing [Unknown]
  - Injection site reaction [Unknown]
  - Chills [Unknown]
  - Injection site pain [Unknown]
  - Pain [Unknown]
  - Wound [Unknown]
  - Hypersensitivity [Recovered/Resolved]
